FAERS Safety Report 17856120 (Version 7)
Quarter: 2021Q2

REPORT INFORMATION
  Report Type: Report from Study
  Country: CA (occurrence: CA)
  Receive Date: 20200603
  Receipt Date: 20210412
  Transmission Date: 20210717
  Serious: Yes (Other)
  Sender: FDA-Public Use
  Company Number: PHHY2015CA047879

PATIENT
  Age: 51 Year
  Sex: Male

DRUGS (7)
  1. SANDOSTATIN LAR DEPOT [Suspect]
     Active Substance: OCTREOTIDE ACETATE
     Dosage: 30 MG, QMO (EVERY 4 WEEKS)
     Route: 030
     Dates: start: 20180726
  2. SANDOSTATIN LAR DEPOT [Suspect]
     Active Substance: OCTREOTIDE ACETATE
     Dosage: 60 MG, QMO (EVERY 4 WEEKS)
     Route: 030
  3. SANDOSTATIN LAR DEPOT [Suspect]
     Active Substance: OCTREOTIDE ACETATE
     Indication: NEUROENDOCRINE CARCINOMA
     Dosage: 30 MG, QMO (EVERY 4 WEEKS)
     Route: 030
     Dates: start: 20150416
  4. SANDOSTATIN [Suspect]
     Active Substance: OCTREOTIDE ACETATE
     Dosage: UNK (DOSE 12+)
     Route: 058
     Dates: start: 2015
  5. ATENOLOL. [Concomitant]
     Active Substance: ATENOLOL
     Indication: PRODUCT USED FOR UNKNOWN INDICATION
     Route: 065
  6. SANDOSTATIN [Suspect]
     Active Substance: OCTREOTIDE ACETATE
     Indication: NEUROENDOCRINE CARCINOMA
     Dosage: UNK UNK, BID (TO CONTINUE 2 WEEKS POST 1ST LAR)
     Route: 058
     Dates: start: 20150416, end: 2015
  7. SANDOSTATIN [Suspect]
     Active Substance: OCTREOTIDE ACETATE

REACTIONS (16)
  - Ear infection [Unknown]
  - Flatulence [Unknown]
  - Injection site pain [Unknown]
  - Gait disturbance [Unknown]
  - Diarrhoea [Unknown]
  - Pyrexia [Unknown]
  - Hyperhidrosis [Unknown]
  - Back pain [Unknown]
  - Blood pressure diastolic decreased [Unknown]
  - Extra dose administered [Unknown]
  - Needle issue [Unknown]
  - Body temperature decreased [Not Recovered/Not Resolved]
  - Swelling face [Unknown]
  - Feeling abnormal [Unknown]
  - Blood pressure increased [Not Recovered/Not Resolved]
  - Blood pressure diastolic increased [Unknown]

NARRATIVE: CASE EVENT DATE: 20150416
